FAERS Safety Report 20606717 (Version 1)
Quarter: 2022Q1

REPORT INFORMATION
  Report Type: Spontaneous
  Country: US (occurrence: US)
  Receive Date: 20220317
  Receipt Date: 20220317
  Transmission Date: 20220423
  Serious: Yes (Life-Threatening, Hospitalization, Other)
  Sender: FDA-Public Use
  Company Number: US-BRACCO-2021US04738

PATIENT
  Age: 56 Year
  Sex: Female

DRUGS (1)
  1. GASTROGRAFIN [Suspect]
     Active Substance: DIATRIZOATE MEGLUMINE\DIATRIZOATE SODIUM
     Indication: Swallow study
     Dosage: UNK
     Route: 042

REACTIONS (3)
  - Condition aggravated [Recovered/Resolved]
  - Pneumonitis aspiration [Recovered/Resolved]
  - Respiratory failure [Recovered/Resolved]
